FAERS Safety Report 9918852 (Version 2)
Quarter: 2014Q2

REPORT INFORMATION
  Report Type: Report from Study
  Country: GB (occurrence: GB)
  Receive Date: 20140224
  Receipt Date: 20140520
  Transmission Date: 20141212
  Serious: Yes (Death, Other)
  Sender: FDA-Public Use
  Company Number: GB-ROCHE-1353480

PATIENT
  Age: 86 Year
  Sex: Female

DRUGS (11)
  1. RITUXIMAB [Suspect]
     Indication: RHEUMATOID ARTHRITIS
     Dosage: LAST DOSE OF RITUXIMAB TAKEN ON 31/JUL/2008
     Route: 065
     Dates: start: 20080717, end: 2008
  2. SENNA [Concomitant]
  3. LACTULOSE [Concomitant]
     Route: 065
  4. PARACETAMOL [Concomitant]
  5. MATRIFEN [Concomitant]
  6. LANSOPRAZOLE [Concomitant]
  7. FERROUS FUMARATE [Concomitant]
  8. PREDNISONE [Concomitant]
  9. CLAROPRAM [Concomitant]
  10. FYBOGEL [Concomitant]
  11. DIGOXIN [Concomitant]

REACTIONS (2)
  - Bronchopneumonia [Fatal]
  - Cerebrovascular disorder [Unknown]
